FAERS Safety Report 25945395 (Version 1)
Quarter: 2025Q4

REPORT INFORMATION
  Report Type: Spontaneous
  Country: CN (occurrence: CN)
  Receive Date: 20251021
  Receipt Date: 20251021
  Transmission Date: 20260118
  Serious: Yes (Hospitalization)
  Sender: BAUSCH AND LOMB
  Company Number: CN-ALFASIGMA-2025ALFA000201

PATIENT
  Age: 28 Year
  Sex: Male
  Weight: 50 kg

DRUGS (4)
  1. RIFAXIMIN [Suspect]
     Active Substance: RIFAXIMIN
     Indication: Glycogen storage disorder
     Dosage: 0.2 G, TID
     Route: 048
     Dates: start: 20250916, end: 20250922
  2. RIFAXIMIN [Suspect]
     Active Substance: RIFAXIMIN
     Dosage: DOSE RE-INTRODUCED
     Route: 065
  3. CEFTRIAXONE SODIUM [Suspect]
     Active Substance: CEFTRIAXONE SODIUM
     Indication: Glycogen storage disorder
     Dosage: 1G, QD
     Route: 041
     Dates: start: 20250914, end: 20250925
  4. CEFTRIAXONE SODIUM [Suspect]
     Active Substance: CEFTRIAXONE SODIUM
     Indication: Infection

REACTIONS (2)
  - Superinfection [Recovering/Resolving]
  - Off label use [Recovered/Resolved]

NARRATIVE: CASE EVENT DATE: 20250916
